FAERS Safety Report 26062278 (Version 1)
Quarter: 2025Q4

REPORT INFORMATION
  Report Type: Spontaneous
  Country: EU (occurrence: EU)
  Receive Date: 20251119
  Receipt Date: 20251119
  Transmission Date: 20260118
  Serious: Yes (Other)
  Sender: AMGEN
  Company Number: EU-KYOWAKIRIN-2025KK021660

PATIENT

DRUGS (4)
  1. DARBEPOETIN ALFA [Suspect]
     Active Substance: DARBEPOETIN ALFA
     Indication: Myelodysplastic syndrome
     Dosage: 150 UG, WEEKLY
     Route: 065
  2. DARBEPOETIN ALFA [Suspect]
     Active Substance: DARBEPOETIN ALFA
     Dosage: DOSAGE WAS SUBSEQUENTLY DOUBLED IN 33 OF THEM
     Route: 065
  3. DARBEPOETIN ALFA [Suspect]
     Active Substance: DARBEPOETIN ALFA
     Dosage: FOURTEEN PATIENTS STARTED ESA AT FULL DOSE
     Route: 065
  4. LUSPATERCEPT [Suspect]
     Active Substance: LUSPATERCEPT
     Indication: Myelodysplastic syndrome
     Dosage: 1.75 MG/KG, 1X/3 WEEKS
     Route: 065

REACTIONS (3)
  - Hepatic cytolysis [Unknown]
  - Fatigue [Unknown]
  - Hypertension [Unknown]
